FAERS Safety Report 8209163-3 (Version None)
Quarter: 2012Q1

REPORT INFORMATION
  Report Type: 
  Country: None (occurrence: None)
  Receive Date: 20120314
  Receipt Date: 20120305
  Transmission Date: 20120608
  Serious: Yes (Hospitalization)
  Sender: FDA-Public Use
  Company Number: US-BAYER-2011-122148

PATIENT
  Age: 15 Year
  Sex: Female
  Weight: 68.481 kg

DRUGS (10)
  1. YAZ [Suspect]
     Indication: MENSTRUAL CYCLE MANAGEMENT
  2. METOCLOPRAMIDE [Concomitant]
     Dosage: 10 MG, UNK
  3. DEXLANSOPRAZOLE [Concomitant]
     Dosage: 60 MG, UNK
  4. YAZ [Suspect]
     Indication: CONTRACEPTION
     Dosage: UNK
     Route: 048
     Dates: start: 20060928, end: 20100115
  5. FLUOXETINE HCL [Concomitant]
     Indication: IRRITABLE BOWEL SYNDROME
     Dosage: UNK
     Dates: start: 20091001
  6. PREVPAC [Concomitant]
  7. RANITIDINE [Concomitant]
  8. DICYCLOMINE [Concomitant]
     Dosage: 10 MG, UNK
  9. GLUCONATE SODIUM [Concomitant]
     Dosage: 324 MG, UNK
  10. ASCORBIC ACID [Concomitant]

REACTIONS (3)
  - INJURY [None]
  - CHOLECYSTITIS CHRONIC [None]
  - GALLBLADDER DISORDER [None]
